FAERS Safety Report 24748490 (Version 2)
Quarter: 2025Q1

REPORT INFORMATION
  Report Type: Spontaneous
  Country: CA (occurrence: CA)
  Receive Date: 20241218
  Receipt Date: 20250128
  Transmission Date: 20250409
  Serious: Yes (Hospitalization, Other)
  Sender: OTSUKA
  Company Number: CA-OTSUKA-2024_033552

PATIENT
  Age: 45 Year
  Sex: Female

DRUGS (6)
  1. ARIPIPRAZOLE [Suspect]
     Active Substance: ARIPIPRAZOLE
     Indication: Major depression
     Dosage: 5 MG, QD
     Route: 065
     Dates: start: 20220426, end: 20220526
  2. ARIPIPRAZOLE [Suspect]
     Active Substance: ARIPIPRAZOLE
     Dosage: 15 MG, QD
     Route: 048
  3. CLONAZEPAM [Suspect]
     Active Substance: CLONAZEPAM
     Indication: Major depression
     Dosage: 0.75 MG, QD
     Route: 065
     Dates: start: 20220426, end: 20220526
  4. MODAFINIL [Suspect]
     Active Substance: MODAFINIL
     Indication: Major depression
     Dosage: 100 MG, QD
     Route: 065
     Dates: start: 20220426, end: 20220526
  5. DULOXETINE [Suspect]
     Active Substance: DULOXETINE
     Indication: Major depression
     Dosage: 120 MG, QD
     Route: 048
     Dates: start: 20220426, end: 20220526
  6. TEMAZEPAM [Suspect]
     Active Substance: TEMAZEPAM
     Indication: Major depression
     Dosage: 15 MG, QD
     Route: 065
     Dates: start: 20220426, end: 20220526

REACTIONS (1)
  - Major depression [Unknown]
